FAERS Safety Report 20009735 (Version 1)
Quarter: 2021Q4

REPORT INFORMATION
  Report Type: Spontaneous
  Country: US (occurrence: US)
  Receive Date: 20211029
  Receipt Date: 20211029
  Transmission Date: 20220303
  Serious: Yes (Hospitalization)
  Sender: FDA-Public Use
  Company Number: None

PATIENT
  Age: 64 Year
  Sex: Female
  Weight: 107.1 kg

DRUGS (22)
  1. REGEN-COV [Suspect]
     Active Substance: CASIRIVIMAB\IMDEVIMAB
     Indication: COVID-19
     Dosage: ?          OTHER FREQUENCY:ONCE;
     Route: 042
     Dates: start: 20211023, end: 20211024
  2. REMDESIVIR [Concomitant]
     Active Substance: REMDESIVIR
     Dates: start: 20211026
  3. DEXAMETHASONE [Concomitant]
     Active Substance: DEXAMETHASONE
     Dates: start: 20211026
  4. ALBUMIN HUMAN [Concomitant]
     Active Substance: ALBUMIN HUMAN
     Dates: start: 20210825
  5. ALBUTEROL [Concomitant]
     Active Substance: ALBUTEROL
     Dates: start: 20211024
  6. MIDODRINE [Concomitant]
     Active Substance: MIDODRINE
     Dates: start: 20211022
  7. PANTOPRAZOLE [Concomitant]
     Active Substance: PANTOPRAZOLE
     Dates: start: 20211022
  8. ACETAMINOPHEN [Concomitant]
     Active Substance: ACETAMINOPHEN
     Dates: start: 20211023, end: 20211023
  9. ONDANSETRON [Concomitant]
     Active Substance: ONDANSETRON
     Dates: start: 20211007
  10. LIDOCAINE [Concomitant]
     Active Substance: LIDOCAINE
     Dates: start: 20210825
  11. SOFOSBUVIR\VELPATASVIR [Concomitant]
     Active Substance: SOFOSBUVIR\VELPATASVIR
     Dates: start: 20210924
  12. CIPROFLOXACIN HYDROCHLORIDE [Concomitant]
     Active Substance: CIPROFLOXACIN HYDROCHLORIDE
     Dates: start: 20210922
  13. CYCLOBENZAPRINE [Concomitant]
     Active Substance: CYCLOBENZAPRINE
     Dates: start: 20211026, end: 20211026
  14. PREDNISONE [Concomitant]
     Active Substance: PREDNISONE
     Dates: start: 20210823, end: 20210823
  15. Aluminum-Magnesium Hydroxide-Simethicone [Concomitant]
     Dates: start: 20211021, end: 20211021
  16. FUROSEMIDE [Concomitant]
     Active Substance: FUROSEMIDE
     Dates: start: 20211022, end: 20211025
  17. LACTULOSE [Concomitant]
     Active Substance: LACTULOSE
     Dates: start: 20211022
  18. MEROPENEM [Concomitant]
     Active Substance: MEROPENEM
     Dates: start: 20211025, end: 20211027
  19. METOCLOPRAMIDE HYDROCHLORIDE [Concomitant]
     Active Substance: METOCLOPRAMIDE HYDROCHLORIDE
     Dates: start: 20211021, end: 20211021
  20. PANTOPRAZOLE [Concomitant]
     Active Substance: PANTOPRAZOLE
     Dates: start: 20211022
  21. PIPERACILLIN AND TAZOBACTAM [Concomitant]
     Active Substance: PIPERACILLIN SODIUM\TAZOBACTAM SODIUM
     Dates: start: 20211022, end: 20211025
  22. TRAMADOL [Concomitant]
     Active Substance: TRAMADOL
     Dates: start: 20211025, end: 20211025

REACTIONS (4)
  - Pyrexia [None]
  - Chills [None]
  - Cough [None]
  - Oxygen saturation decreased [None]

NARRATIVE: CASE EVENT DATE: 20211026
